FAERS Safety Report 17100888 (Version 1)
Quarter: 2019Q4

REPORT INFORMATION
  Report Type: Spontaneous
  Country: US (occurrence: US)
  Receive Date: 20191202
  Receipt Date: 20191202
  Transmission Date: 20200122
  Serious: No
  Sender: FDA-Public Use
  Company Number: US-SA-2019SA327362

PATIENT
  Age: 19 Year
  Sex: Male

DRUGS (4)
  1. IMOVAX [Concomitant]
     Active Substance: RABIES VACCINE\RABIES VIRUS STRAIN PM-1503-3M ANTIGEN (PROPIOLACTONE INACTIVATED)
     Dosage: UNK
     Route: 065
  2. IMOVAX [Concomitant]
     Active Substance: RABIES VACCINE\RABIES VIRUS STRAIN PM-1503-3M ANTIGEN (PROPIOLACTONE INACTIVATED)
     Indication: IMMUNISATION
     Dosage: UNK
     Route: 065
     Dates: start: 20190908
  3. IMOGAM RABIES-HT [Suspect]
     Active Substance: HUMAN RABIES VIRUS IMMUNE GLOBULIN
     Indication: ANIMAL BITE
     Dosage: UNK
     Route: 065
     Dates: start: 20190908, end: 20190908
  4. IMOGAM RABIES-HT [Suspect]
     Active Substance: HUMAN RABIES VIRUS IMMUNE GLOBULIN
     Dosage: UNK
     Route: 065

REACTIONS (1)
  - Extra dose administered [Unknown]
